FAERS Safety Report 11547880 (Version 1)
Quarter: 2015Q3

REPORT INFORMATION
  Report Type: Spontaneous
  Country: US (occurrence: US)
  Receive Date: 20150924
  Receipt Date: 20150924
  Transmission Date: 20151125
  Serious: No
  Sender: FDA-Public Use
  Company Number: US-AMNEAL PHARMACEUTICALS-2015AMN00032

PATIENT
  Age: 62 Year
  Sex: Female
  Weight: 72.56 kg

DRUGS (5)
  1. OXYCODONE [Concomitant]
     Active Substance: OXYCODONE
     Indication: BACK PAIN
     Dosage: 10-15 MG, 1X/DAY AS NEEDED
     Dates: start: 201509
  2. GABAPENTIN. [Suspect]
     Active Substance: GABAPENTIN
     Indication: NEURALGIA
     Dosage: 1 CAPSULES, 3X/DAY
     Dates: start: 201409
  3. EPIDURAL [Concomitant]
     Dosage: UNK DOSAGE UNITS, ONCE
     Dates: start: 20141127, end: 20141127
  4. LISINOPRIL/HCTZ 20/12.5 MG [Concomitant]
     Indication: HYPERTENSION
     Dosage: 1 TABLETS, 1X/DAY
     Dates: start: 1995
  5. EPIDURAL [Concomitant]
     Dosage: UNK DOSAGE UNITS, ONCE
     Dates: start: 20140927, end: 20140927

REACTIONS (1)
  - Purpura [Not Recovered/Not Resolved]

NARRATIVE: CASE EVENT DATE: 201409
